FAERS Safety Report 13204701 (Version 1)
Quarter: 2017Q1

REPORT INFORMATION
  Report Type: Spontaneous
  Country: US (occurrence: US)
  Receive Date: 20170208
  Receipt Date: 20170208
  Transmission Date: 20170428
  Serious: No
  Sender: FDA-Public Use
  Company Number: None

PATIENT
  Age: 67 Year
  Sex: Male

DRUGS (3)
  1. LISINOPRIL. [Suspect]
     Active Substance: LISINOPRIL
  2. PLAVIX [Suspect]
     Active Substance: CLOPIDOGREL BISULFATE
  3. METOPROLOL. [Suspect]
     Active Substance: METOPROLOL

REACTIONS (1)
  - Neoplasm [None]
